FAERS Safety Report 5782471-1 (Version None)
Quarter: 2008Q2

REPORT INFORMATION
  Report Type: 
  Country: None (occurrence: None)
  Receive Date: 20080623
  Receipt Date: 20080228
  Transmission Date: 20081010
  Serious: Yes (Hospitalization)
  Sender: FDA-Public Use
  Company Number: US-AMGEN-QUU265971

PATIENT
  Sex: Male
  Weight: 88.5 kg

DRUGS (14)
  1. ARANESP [Suspect]
     Indication: DIALYSIS
     Route: 058
     Dates: start: 20080204
  2. LANTUS [Concomitant]
     Route: 058
  3. SPIRIVA [Concomitant]
     Route: 055
  4. OMEPRAZOLE [Concomitant]
     Route: 048
  5. CALCITRIOL [Concomitant]
     Route: 048
  6. FLUOXETINE [Concomitant]
     Route: 048
  7. COREG [Concomitant]
     Route: 048
  8. CRESTOR [Concomitant]
     Route: 048
  9. ALBUTEROL [Concomitant]
     Route: 055
  10. VANCOMYCIN [Concomitant]
  11. TOBRAMYCIN [Concomitant]
  12. FERROUS SULFATE TAB [Concomitant]
     Route: 048
  13. RENAGEL [Concomitant]
     Route: 048
  14. VITAMIN B COMPLEX WITH C [Concomitant]
     Route: 048

REACTIONS (2)
  - CARDIAC FAILURE CONGESTIVE [None]
  - FLUID OVERLOAD [None]
